FAERS Safety Report 13759981 (Version 1)
Quarter: 2017Q3

REPORT INFORMATION
  Report Type: Report from Study
  Country: US (occurrence: US)
  Receive Date: 20170717
  Receipt Date: 20170717
  Transmission Date: 20171127
  Serious: No
  Sender: FDA-Public Use
  Company Number: PHEH2017US021496

PATIENT
  Sex: Female

DRUGS (8)
  1. COREG [Suspect]
     Active Substance: CARVEDILOL
     Dosage: 1 PILL IN THE MORNING AND 1 PILL AT NIGHT
     Route: 065
  2. ENTRESTO [Suspect]
     Active Substance: SACUBITRIL\VALSARTAN
     Indication: PRODUCT USED FOR UNKNOWN INDICATION
     Dosage: 49/51 MG (49 MG SACUBITRIL AND 51MG VALSARTAN) BID
     Route: 065
  3. BUMEX [Concomitant]
     Active Substance: BUMETANIDE
     Indication: PRODUCT USED FOR UNKNOWN INDICATION
     Dosage: UNK
     Route: 065
  4. METOPROLOL. [Concomitant]
     Active Substance: METOPROLOL
     Indication: PRODUCT USED FOR UNKNOWN INDICATION
     Dosage: UNK UNK, ONCE A WEEK
     Route: 065
  5. POTASSIUM [Concomitant]
     Active Substance: POTASSIUM
     Indication: PRODUCT USED FOR UNKNOWN INDICATION
     Dosage: UNK
     Route: 065
  6. COREG [Suspect]
     Active Substance: CARVEDILOL
     Indication: PRODUCT USED FOR UNKNOWN INDICATION
     Dosage: 1 TINY PILL IN THE MORNING AND 2 PILLS AT NIGHT
     Route: 065
  7. COUMADIN [Concomitant]
     Active Substance: WARFARIN SODIUM
     Indication: PRODUCT USED FOR UNKNOWN INDICATION
     Dosage: UNK
     Route: 065
  8. THYROXINE [Concomitant]
     Active Substance: LEVOTHYROXINE
     Indication: PRODUCT USED FOR UNKNOWN INDICATION
     Dosage: UNK
     Route: 065

REACTIONS (10)
  - Urticaria [Recovering/Resolving]
  - Dry skin [Recovering/Resolving]
  - Blood pressure abnormal [Recovering/Resolving]
  - Renal disorder [Recovering/Resolving]
  - Peripheral swelling [Unknown]
  - Arthropathy [Unknown]
  - Chondrocalcinosis pyrophosphate [Recovered/Resolved]
  - Joint swelling [Unknown]
  - Skin exfoliation [Recovering/Resolving]
  - Blood creatinine increased [Recovering/Resolving]
